FAERS Safety Report 15356953 (Version 2)
Quarter: 2018Q3

REPORT INFORMATION
  Report Type: Spontaneous
  Country: AR (occurrence: AR)
  Receive Date: 20180906
  Receipt Date: 20180910
  Transmission Date: 20181010
  Serious: Yes (Hospitalization, Other)
  Sender: FDA-Public Use
  Company Number: AR-GLAXOSMITHKLINE-AR2018GSK158897

PATIENT
  Sex: Female
  Weight: 58 kg

DRUGS (2)
  1. MADOPAR [Concomitant]
     Active Substance: BENSERAZIDE HYDROCHLORIDE\LEVODOPA
     Indication: PRODUCT USED FOR UNKNOWN INDICATION
     Dosage: 250 MG, UNK
  2. REQUIP PD 24 HOUR [Suspect]
     Active Substance: ROPINIROLE HYDROCHLORIDE
     Indication: PARKINSON^S DISEASE
     Dosage: UNK

REACTIONS (19)
  - Oral discomfort [Unknown]
  - Dysphagia [Unknown]
  - Tooth loss [Not Recovered/Not Resolved]
  - Parkinson^s disease [Unknown]
  - Clavicle fracture [Unknown]
  - Dry mouth [Unknown]
  - Hypersensitivity [Unknown]
  - Oedema peripheral [Recovered/Resolved]
  - Oropharyngeal pain [Unknown]
  - Swelling face [Unknown]
  - Tongue dry [Unknown]
  - Oedema mouth [Not Recovered/Not Resolved]
  - Aptyalism [Not Recovered/Not Resolved]
  - Peripheral swelling [Unknown]
  - Swollen tongue [Unknown]
  - Weight decreased [Unknown]
  - Lip oedema [Not Recovered/Not Resolved]
  - Fall [Unknown]
  - Intentional product misuse [Unknown]
